FAERS Safety Report 5716043-1 (Version None)
Quarter: 2008Q2

REPORT INFORMATION
  Report Type: 
  Country: None (occurrence: None)
  Receive Date: 20080422
  Receipt Date: 20071101
  Transmission Date: 20081010
  Serious: No
  Sender: FDA-Public Use
  Company Number: APP200700324

PATIENT
  Sex: Female

DRUGS (1)
  1. HEPARIN SODIUM [Suspect]
     Indication: HYPERCOAGULATION
     Dosage: INJECTION
     Dates: end: 20060801

REACTIONS (1)
  - INJECTION SITE BRUISING [None]
